FAERS Safety Report 24544140 (Version 2)
Quarter: 2024Q4

REPORT INFORMATION
  Report Type: Spontaneous
  Country: DE (occurrence: DE)
  Receive Date: 20241024
  Receipt Date: 20241105
  Transmission Date: 20250114
  Serious: Yes (Other)
  Sender: SANDOZ
  Company Number: DE-BRISTOL-MYERS SQUIBB COMPANY-2024-145522

PATIENT
  Age: 76 Year
  Sex: Female
  Weight: 76 kg

DRUGS (58)
  1. FLUOROURACIL [Suspect]
     Active Substance: FLUOROURACIL
     Indication: Oesophageal adenocarcinoma
     Dosage: 2750 MG, BIW
     Route: 042
     Dates: start: 20240510
  2. OXALIPLATIN [Suspect]
     Active Substance: OXALIPLATIN
     Dosage: 100 MG, BIW
     Route: 042
     Dates: start: 20240510
  3. OXALIPLATIN [Suspect]
     Active Substance: OXALIPLATIN
     Indication: Oesophageal adenocarcinoma
     Dosage: 1000 MG 10% 1MG/10ML
     Route: 048
     Dates: start: 20240717
  4. OPDIVO [Suspect]
     Active Substance: NIVOLUMAB
     Indication: Oesophageal adenocarcinoma
     Dosage: 1 MG, QD
     Route: 042
     Dates: start: 20240510
  5. OPDIVO [Suspect]
     Active Substance: NIVOLUMAB
     Dosage: 240 MG, BIW
     Route: 042
     Dates: start: 20240510
  6. AMPICILLIN [Concomitant]
     Active Substance: AMPICILLIN
     Indication: Adverse event
     Dosage: 1000 MG
     Route: 042
     Dates: start: 20240515, end: 20240517
  7. AMPICILLIN [Concomitant]
     Active Substance: AMPICILLIN
     Dosage: 2000 MG
     Route: 042
     Dates: start: 20240515, end: 20240517
  8. BISOPROLOL [Concomitant]
     Active Substance: BISOPROLOL\BISOPROLOL FUMARATE
     Indication: Product used for unknown indication
     Dosage: 10 MG
     Route: 048
     Dates: start: 20240704
  9. BISOPROLOL [Concomitant]
     Active Substance: BISOPROLOL\BISOPROLOL FUMARATE
     Dosage: 10 MG
     Route: 048
     Dates: end: 20240611
  10. BISOPROLOL [Concomitant]
     Active Substance: BISOPROLOL\BISOPROLOL FUMARATE
     Dosage: 5 MG, QD
     Route: 048
  11. LEUCOVORIN CALCIUM [Concomitant]
     Active Substance: LEUCOVORIN CALCIUM
     Indication: Product used for unknown indication
     Dosage: 2000 MG
     Route: 042
     Dates: start: 20240515, end: 20240517
  12. LEUCOVORIN CALCIUM [Concomitant]
     Active Substance: LEUCOVORIN CALCIUM
     Dosage: 440 MG/M2, BIW
     Route: 065
     Dates: start: 20240510
  13. CARBIMAZOLE [Concomitant]
     Active Substance: CARBIMAZOLE
     Indication: Product used for unknown indication
     Dosage: 10 MG
     Route: 048
  14. ENOXAPARIN SODIUM [Concomitant]
     Active Substance: ENOXAPARIN SODIUM
     Indication: Prophylaxis
     Dosage: 40 MG, QD
     Route: 058
     Dates: start: 20240528
  15. DEXAMETHASONE [Concomitant]
     Active Substance: DEXAMETHASONE
     Dosage: 12 MG, QD
     Route: 042
     Dates: start: 20240510
  16. DEXAMETHASONE [Concomitant]
     Active Substance: DEXAMETHASONE
     Indication: Prophylaxis
     Dosage: 40 MG
     Route: 048
     Dates: start: 20240626
  17. DEXAMETHASONE [Concomitant]
     Active Substance: DEXAMETHASONE
     Dosage: 40 MG
     Route: 048
     Dates: start: 20240627
  18. DIGOXIN [Concomitant]
     Active Substance: DIGOXIN
     Indication: Adverse event
     Dosage: 0.5 MG, QD 10% 1MG/10ML
     Route: 042
     Dates: start: 20240612, end: 20240612
  19. DIGOXIN [Concomitant]
     Active Substance: DIGOXIN
     Dosage: 2 MG, QD 10% 1MG/10ML
     Route: 042
     Dates: start: 20240612, end: 20240612
  20. HUMAN RED BLOOD CELL [Concomitant]
     Active Substance: HUMAN RED BLOOD CELL
     Dosage: 2 I.E
     Route: 042
     Dates: start: 20240619, end: 20240620
  21. HUMAN RED BLOOD CELL [Concomitant]
     Active Substance: HUMAN RED BLOOD CELL
     Indication: Adverse event
     Dosage: 2 QD
     Route: 042
     Dates: start: 20240717, end: 20240717
  22. FUROSEMIDE [Concomitant]
     Active Substance: FUROSEMIDE
     Dosage: 20 MG, QD
     Route: 042
     Dates: start: 20240612, end: 20240612
  23. FUROSEMIDE [Concomitant]
     Active Substance: FUROSEMIDE
     Dosage: 40 MG, QD
     Route: 042
     Dates: start: 20240613, end: 20240618
  24. FUROSEMIDE [Concomitant]
     Active Substance: FUROSEMIDE
     Indication: Adverse event
     Dosage: 50 MG, QD 10% 1MG/10ML
     Route: 048
     Dates: start: 20240717
  25. GRANISETRON [Concomitant]
     Active Substance: GRANISETRON
     Dosage: 1 MG
     Route: 042
     Dates: start: 20240510
  26. GRANISETRON [Concomitant]
     Active Substance: GRANISETRON
     Indication: Prophylaxis
     Dosage: 600 MG
     Route: 048
     Dates: start: 20240624, end: 20240701
  27. LEVOFLOXACIN [Concomitant]
     Active Substance: LEVOFLOXACIN
     Indication: Adverse event
     Dosage: 10 MG
     Route: 048
     Dates: start: 20240611
  28. LEVOFLOXACIN [Concomitant]
     Active Substance: LEVOFLOXACIN
     Dosage: 500 MG, QD
     Route: 048
     Dates: start: 20240517, end: 20240521
  29. LINEZOLID [Concomitant]
     Active Substance: LINEZOLID
     Indication: Adverse event
     Dosage: 400 MG/M2, Q2W
     Route: 042
     Dates: start: 20240510
  30. LINEZOLID [Concomitant]
     Active Substance: LINEZOLID
     Dosage: 600.000MG
     Route: 048
     Dates: start: 20240624, end: 20240701
  31. MAGNESIUM [Concomitant]
     Active Substance: MAGNESIUM
     Indication: Adverse event
     Dosage: 100 MG, Q2W
     Route: 042
     Dates: start: 20240510
  32. MAGNESIUM [Concomitant]
     Active Substance: MAGNESIUM
     Dosage: 2 MG, QD
     Route: 042
     Dates: start: 20240612
  33. METAMIZOLE [Concomitant]
     Active Substance: METAMIZOLE
     Dosage: 1000.000MG
     Route: 048
     Dates: start: 20240523, end: 20240612
  34. METAMIZOLE [Concomitant]
     Active Substance: METAMIZOLE
     Indication: Product used for unknown indication
     Dosage: 240 MG, Q2W
     Route: 042
     Dates: start: 20240510
  35. METAMIZOLE [Concomitant]
     Active Substance: METAMIZOLE
     Dosage: 500 MG
     Route: 048
     Dates: start: 20240625, end: 20240716
  36. METOPROLOL TARTRATE [Concomitant]
     Active Substance: METOPROLOL TARTRATE
     Dosage: FRACTIONATED
     Route: 042
     Dates: start: 20240612, end: 20240612
  37. METOPROLOL TARTRATE [Concomitant]
     Active Substance: METOPROLOL TARTRATE
     Indication: Product used for unknown indication
     Dosage: 5.000MG QD
     Route: 042
     Dates: start: 20240612, end: 20240612
  38. PANTOPRAZOLE [Concomitant]
     Active Substance: PANTOPRAZOLE
     Dosage: 10 MG
     Route: 048
  39. PANTOPRAZOLE [Concomitant]
     Active Substance: PANTOPRAZOLE
     Dosage: 25 MG, QD
     Route: 048
     Dates: start: 20240625
  40. PANTOPRAZOLE [Concomitant]
     Active Substance: PANTOPRAZOLE
     Dosage: 40 MG, QD
     Route: 048
     Dates: start: 20240627
  41. PANTOPRAZOLE [Concomitant]
     Active Substance: PANTOPRAZOLE
     Indication: Prophylaxis
     Dosage: 40 MG
     Route: 048
     Dates: start: 20240626
  42. PANTOPRAZOLE [Concomitant]
     Active Substance: PANTOPRAZOLE
     Dosage: 40.000MG
     Route: 048
     Dates: end: 20240626
  43. ACETAMINOPHEN [Concomitant]
     Active Substance: ACETAMINOPHEN
     Indication: Product used for unknown indication
     Dosage: 10% 1MG/10ML
     Route: 048
     Dates: start: 20240717
  44. ACETAMINOPHEN [Concomitant]
     Active Substance: ACETAMINOPHEN
     Indication: Product used for unknown indication
     Dosage: 5 MG, QD
     Route: 048
     Dates: start: 20240717
  45. SPIRONOLACTONE [Concomitant]
     Active Substance: SPIRONOLACTONE
     Indication: Product used for unknown indication
     Dosage: 25.000MG QD
     Route: 048
     Dates: start: 20240625
  46. SPIRONOLACTONE [Concomitant]
     Active Substance: SPIRONOLACTONE
     Indication: Product used for unknown indication
     Dosage: 12 MG, QD
     Route: 042
     Dates: start: 20240510
  47. SULBACTAM [Concomitant]
     Active Substance: SULBACTAM
     Dosage: 1000.000MG
     Route: 042
     Dates: start: 20240515, end: 20240517
  48. SULBACTAM [Concomitant]
     Active Substance: SULBACTAM
     Indication: Adverse event
     Dosage: 500 MG
     Route: 048
     Dates: start: 20240517, end: 20240521
  49. TILIDINE [Concomitant]
     Active Substance: TILIDINE
     Indication: Product used for unknown indication
     Dosage: 1000 MG
     Route: 048
     Dates: start: 20240523, end: 20240612
  50. TILIDINE [Concomitant]
     Active Substance: TILIDINE
     Dosage: 10% 1MG/10ML, 50 MG, QD
     Route: 048
     Dates: start: 20240717
  51. TILIDINE [Concomitant]
     Active Substance: TILIDINE
     Dosage: 500 MG
     Route: 048
     Dates: start: 20240625, end: 20240716
  52. TORSEMIDE [Concomitant]
     Active Substance: TORSEMIDE
     Dosage: 10 MG, QD
     Route: 048
     Dates: start: 20240704
  53. TORSEMIDE [Concomitant]
     Active Substance: TORSEMIDE
     Indication: Product used for unknown indication
     Dosage: 15 MG, QD
     Route: 048
     Dates: start: 20240619, end: 20240703
  54. TORSEMIDE [Concomitant]
     Active Substance: TORSEMIDE
     Dosage: 5 MG
     Route: 048
  55. VALSARTAN [Concomitant]
     Active Substance: VALSARTAN
     Dosage: 20 MG, QD
     Route: 042
     Dates: start: 20240612, end: 20240612
  56. VALSARTAN [Concomitant]
     Active Substance: VALSARTAN
     Indication: Product used for unknown indication
     Dosage: 40 MG, QD
     Route: 042
     Dates: start: 20240613, end: 20240618
  57. VALSARTAN [Concomitant]
     Active Substance: VALSARTAN
     Dosage: 40 MG, QD
     Route: 048
     Dates: start: 20240627
  58. VALSARTAN [Concomitant]
     Active Substance: VALSARTAN
     Dosage: 40 MG, QD
     Route: 048
     Dates: end: 20240626

REACTIONS (2)
  - Bladder transitional cell carcinoma [Not Recovered/Not Resolved]
  - Urinary tract infection [Recovered/Resolved]

NARRATIVE: CASE EVENT DATE: 20240617
